FAERS Safety Report 10163415 (Version 1)
Quarter: 2014Q2

REPORT INFORMATION
  Report Type: Spontaneous
  Country: US (occurrence: US)
  Receive Date: 20140509
  Receipt Date: 20140509
  Transmission Date: 20141212
  Serious: No
  Sender: FDA-Public Use
  Company Number: US-PFIZER INC-2014127958

PATIENT
  Age: 57 Year
  Sex: Male
  Weight: 70.75 kg

DRUGS (6)
  1. LYRICA [Suspect]
     Indication: HYPOAESTHESIA
     Dosage: 75 MG, DAILY
     Dates: start: 201403
  2. VITAMIN B COMPLEX [Concomitant]
     Indication: VITAMIN SUPPLEMENTATION
     Dosage: UNK, DAILY
  3. MORPHINE [Concomitant]
     Indication: PAIN
     Dosage: 10 MG, 2X/DAY
     Dates: start: 2014
  4. MORPHINE [Concomitant]
     Indication: BACK DISORDER
  5. OXYCODONE [Concomitant]
     Indication: PAIN
     Dosage: 10 MG, AS NEEDED
     Dates: start: 2014
  6. OXYCODONE [Concomitant]
     Indication: BACK DISORDER

REACTIONS (2)
  - Abdominal discomfort [Unknown]
  - Nausea [Unknown]
